FAERS Safety Report 23523837 (Version 1)
Quarter: 2024Q1

REPORT INFORMATION
  Report Type: Report from Study
  Country: LT (occurrence: LT)
  Receive Date: 20240214
  Receipt Date: 20240214
  Transmission Date: 20240410
  Serious: Yes (Other)
  Sender: FDA-Public Use
  Company Number: LT-002147023-NVSC2024LT016590

PATIENT
  Sex: Male

DRUGS (1)
  1. MAYZENT [Suspect]
     Active Substance: SIPONIMOD
     Indication: Multiple sclerosis
     Dosage: 2 MG, QD (VERY LOW)
     Route: 048
     Dates: start: 202401, end: 20240122

REACTIONS (5)
  - Urinary retention [Unknown]
  - Urinary tract infection [Unknown]
  - Cough [Unknown]
  - Productive cough [Unknown]
  - Hepatic enzyme increased [Unknown]
